FAERS Safety Report 16797961 (Version 2)
Quarter: 2019Q3

REPORT INFORMATION
  Report Type: Report from Study
  Country: None (occurrence: US)
  Receive Date: 20190912
  Receipt Date: 20190920
  Transmission Date: 20191005
  Serious: Yes (Other)
  Sender: FDA-Public Use
  Company Number: US-ABBVIE-19K-163-2902817-00

PATIENT
  Age: 56 Year
  Sex: Female
  Weight: 79.9 kg

DRUGS (14)
  1. HUMIRA [Suspect]
     Active Substance: ADALIMUMAB
     Indication: HIDRADENITIS
     Route: 058
     Dates: start: 20190821, end: 20190821
  2. HUMIRA [Suspect]
     Active Substance: ADALIMUMAB
     Route: 058
     Dates: start: 20190904, end: 20190904
  3. PROPANOLOL [Concomitant]
     Active Substance: PROPRANOLOL HYDROCHLORIDE
     Indication: ATRIAL FIBRILLATION
  4. SYNTHROID [Suspect]
     Active Substance: LEVOTHYROXINE SODIUM
     Indication: HYPOTHYROIDISM
     Route: 048
     Dates: start: 2003, end: 20190801
  5. FLEXERIL [Concomitant]
     Active Substance: CYCLOBENZAPRINE HYDROCHLORIDE
     Indication: MUSCLE RELAXANT THERAPY
  6. NITROGLYCERINE [Concomitant]
     Active Substance: NITROGLYCERIN
     Indication: CHEST PAIN
  7. RABEPRAZOLE [Concomitant]
     Active Substance: RABEPRAZOLE
     Indication: GASTROOESOPHAGEAL REFLUX DISEASE
  8. ZOLPIDEM [Concomitant]
     Active Substance: ZOLPIDEM TARTRATE
     Indication: SLEEP DISORDER THERAPY
  9. SYNTHROID [Suspect]
     Active Substance: LEVOTHYROXINE SODIUM
     Route: 048
     Dates: start: 20190802
  10. BETAMETHASONE. [Concomitant]
     Active Substance: BETAMETHASONE
     Indication: RASH
  11. FLEXERIL [Concomitant]
     Active Substance: CYCLOBENZAPRINE HYDROCHLORIDE
     Indication: MYALGIA
  12. PROPANOLOL [Concomitant]
     Active Substance: PROPRANOLOL HYDROCHLORIDE
     Indication: HEART RATE IRREGULAR
  13. RABEPRAZOLE [Concomitant]
     Active Substance: RABEPRAZOLE
     Indication: HIATUS HERNIA
  14. FLEXERIL [Concomitant]
     Active Substance: CYCLOBENZAPRINE HYDROCHLORIDE
     Indication: MUSCLE TIGHTNESS

REACTIONS (15)
  - Trigger finger [Recovered/Resolved]
  - Dizziness [Recovered/Resolved]
  - Wrong technique in product usage process [Unknown]
  - Headache [Recovered/Resolved]
  - Nausea [Recovered/Resolved]
  - Thyroid function test abnormal [Not Recovered/Not Resolved]
  - Drug ineffective [Not Recovered/Not Resolved]
  - Nausea [Recovered/Resolved]
  - Injection site rash [Recovered/Resolved]
  - Incorrect dose administered [Unknown]
  - Headache [Recovered/Resolved]
  - Hot flush [Not Recovered/Not Resolved]
  - Dysgeusia [Recovered/Resolved]
  - Injection site bruising [Recovered/Resolved]
  - Injection site erythema [Recovered/Resolved]

NARRATIVE: CASE EVENT DATE: 2007
